FAERS Safety Report 5353017-7 (Version None)
Quarter: 2007Q2

REPORT INFORMATION
  Report Type: 
  Country: None (occurrence: None)
  Receive Date: 20070606
  Receipt Date: 20070521
  Transmission Date: 20071010
  Serious: Yes (Other)
  Sender: FDA-Public Use
  Company Number: 000#8#2007-00165

PATIENT
  Sex: Male

DRUGS (3)
  1. GLYCERYL TRINITRATE (DOSE UNKNOWN), UNKNOWN (GLYCERYL TRINITRATE) [Suspect]
     Indication: CHEST PAIN
     Dosage: .3 MG SUBLINGUAL
     Route: 060
  2. ACETYLSALICYLIC ACID [ACETYLSALICYCLIC ACID) [Concomitant]
  3. OXYGEN (OXYGEN) [Concomitant]

REACTIONS (10)
  - BLOOD PRESSURE DECREASED [None]
  - BLOOD PRESSURE SYSTOLIC INCREASED [None]
  - CHEST DISCOMFORT [None]
  - HEART RATE DECREASED [None]
  - MALAISE [None]
  - NAUSEA [None]
  - NODAL ARRHYTHMIA [None]
  - PALLOR [None]
  - RESPIRATORY RATE INCREASED [None]
  - SYNCOPE VASOVAGAL [None]
